FAERS Safety Report 9995913 (Version 1)
Quarter: 2014Q1

REPORT INFORMATION
  Report Type: Spontaneous
  Country: NO (occurrence: NO)
  Receive Date: 20140311
  Receipt Date: 20140311
  Transmission Date: 20141002
  Serious: Yes (Hospitalization)
  Sender: FDA-Public Use
  Company Number: NO-ACTAVIS-2014-03878

PATIENT
  Age: 66 Year
  Sex: Female

DRUGS (2)
  1. DICLOFENAC (UNKNOWN) [Suspect]
     Indication: PAIN
     Dosage: 50 MG, TID
     Route: 048
  2. ALBYL-E [Suspect]
     Indication: CARDIAC DISORDER
     Dosage: 75 MG, DAILY
     Route: 048

REACTIONS (2)
  - Duodenal ulcer haemorrhage [Recovering/Resolving]
  - Melaena [Recovering/Resolving]
